FAERS Safety Report 15996578 (Version 2)
Quarter: 2019Q3

REPORT INFORMATION
  Report Type: Report from Study
  Country: US (occurrence: US)
  Receive Date: 20190222
  Receipt Date: 20190724
  Transmission Date: 20191004
  Serious: Yes (Life-Threatening, Other)
  Sender: FDA-Public Use
  Company Number: US-OTSUKA-2019_005225

PATIENT
  Sex: Female

DRUGS (4)
  1. TOLVAPTAN [Suspect]
     Active Substance: TOLVAPTAN
     Dosage: 45 MG, QD (UPON WAKING)
     Route: 048
     Dates: start: 201808
  2. TOLVAPTAN [Suspect]
     Active Substance: TOLVAPTAN
     Dosage: 15 MG, QD (EIGHT HOURS LATER)
     Route: 048
     Dates: start: 201808
  3. TOLVAPTAN [Suspect]
     Active Substance: TOLVAPTAN
     Dosage: 30 MG, QD ( IN THE AFTERNOON)
     Route: 065
     Dates: start: 20181105, end: 20190129
  4. TOLVAPTAN [Suspect]
     Active Substance: TOLVAPTAN
     Indication: CONGENITAL CYSTIC KIDNEY DISEASE
     Dosage: 60 MG, QD (IN THE MORNING)
     Route: 065
     Dates: start: 20181105, end: 20190129

REACTIONS (1)
  - Liver injury [Unknown]
